FAERS Safety Report 19768329 (Version 4)
Quarter: 2022Q1

REPORT INFORMATION
  Report Type: Other
  Country: GR (occurrence: GR)
  Receive Date: 20210830
  Receipt Date: 20220115
  Transmission Date: 20220423
  Serious: Yes (Death, Hospitalization)
  Sender: FDA-Public Use
  Company Number: GR-ROCHE-2896656

PATIENT
  Age: 76 Year
  Sex: Female

DRUGS (7)
  1. RITUXIMAB [Suspect]
     Active Substance: RITUXIMAB
     Indication: Mixed connective tissue disease
     Route: 042
     Dates: start: 201807
  2. RITUXIMAB [Suspect]
     Active Substance: RITUXIMAB
     Indication: Raynaud^s phenomenon
     Route: 042
     Dates: start: 202001
  3. RITUXIMAB [Suspect]
     Active Substance: RITUXIMAB
     Indication: Oesophageal disorder
     Route: 042
     Dates: start: 201807
  4. RITUXIMAB [Suspect]
     Active Substance: RITUXIMAB
     Indication: Myositis
  5. RITUXIMAB [Suspect]
     Active Substance: RITUXIMAB
     Indication: Arthritis
  6. METHYLPREDNISOLONE [Concomitant]
     Active Substance: METHYLPREDNISOLONE
  7. METHOTREXATE [Concomitant]
     Active Substance: METHOTREXATE
     Indication: Mixed connective tissue disease
     Dates: end: 2019

REACTIONS (3)
  - COVID-19 pneumonia [Fatal]
  - Off label use [Unknown]
  - Multiple organ dysfunction syndrome [Fatal]

NARRATIVE: CASE EVENT DATE: 20200202
